FAERS Safety Report 10971122 (Version 1)
Quarter: 2015Q1

REPORT INFORMATION
  Report Type: Spontaneous
  Country: US (occurrence: US)
  Receive Date: 20150331
  Receipt Date: 20150331
  Transmission Date: 20150721
  Serious: No
  Sender: FDA-Public Use
  Company Number: US-BAUSCH-SYM-2013-13615

PATIENT
  Sex: Female

DRUGS (2)
  1. XENAZINE [Suspect]
     Active Substance: TETRABENAZINE
     Dosage: 18.75 MG, DAILY
     Route: 048
  2. XENAZINE [Suspect]
     Active Substance: TETRABENAZINE
     Indication: BLEPHAROSPASM
     Dosage: 25 MG, DAILY
     Route: 048
     Dates: start: 20131107

REACTIONS (9)
  - Fatigue [Recovering/Resolving]
  - Dysgraphia [Recovering/Resolving]
  - Insomnia [Recovering/Resolving]
  - Wrong technique in drug usage process [Unknown]
  - Muscular weakness [Recovering/Resolving]
  - Off label use [Unknown]
  - Nausea [Recovering/Resolving]
  - Restlessness [Recovering/Resolving]
  - Bruxism [Recovering/Resolving]
